FAERS Safety Report 20653277 (Version 1)
Quarter: 2022Q1

REPORT INFORMATION
  Report Type: Report from Study
  Country: US (occurrence: US)
  Receive Date: 20220330
  Receipt Date: 20220330
  Transmission Date: 20220423
  Serious: Yes (Hospitalization, Other)
  Sender: FDA-Public Use
  Company Number: US-BAXTER-2022BAX005378

PATIENT
  Age: 25 Year
  Sex: Female
  Weight: 64.7 kg

DRUGS (13)
  1. CYCLOPHOSPHAMIDE [Suspect]
     Active Substance: CYCLOPHOSPHAMIDE
     Indication: Precursor B-lymphoblastic lymphoma
     Dosage: FIRST COURSE
     Route: 042
     Dates: start: 20210926
  2. CYCLOPHOSPHAMIDE [Suspect]
     Active Substance: CYCLOPHOSPHAMIDE
     Dosage: SECOND COURSE, TOTAL DOSE ADMINISTERED THIS COURSE: 1660 MG, D1 AND D29
     Route: 042
     Dates: start: 20220121, end: 20220121
  3. CYTARABINE [Suspect]
     Active Substance: CYTARABINE
     Indication: Precursor B-lymphoblastic lymphoma
     Dosage: FIRST COURSE, ROUTE: IV OR SC
     Dates: start: 20210926
  4. CYTARABINE [Suspect]
     Active Substance: CYTARABINE
     Dosage: SECOND COURSE, TOTAL DOSE ADMINISTERED THIS COURSE: 125 MG, ROUTE: IV OR SC,
     Route: 042
     Dates: start: 20220121, end: 20220121
  5. RITUXIMAB [Suspect]
     Active Substance: RITUXIMAB
     Indication: Precursor B-lymphoblastic lymphoma
     Dosage: FIRST COURSE
     Route: 065
     Dates: start: 20210926
  6. RITUXIMAB [Suspect]
     Active Substance: RITUXIMAB
     Dosage: SECOND COURSE, TOTAL DOSE ADMINISTERED THIS COURSE: 600 MG, DAYS 1 AND 8 AND AGAIN 29 AND 36.
     Route: 042
     Dates: start: 20220121, end: 20220121
  7. DEXAMETHASONE [Suspect]
     Active Substance: DEXAMETHASONE
     Indication: Precursor B-lymphoblastic lymphoma
     Dosage: FIRST COURSE
     Route: 065
     Dates: start: 20210926
  8. DEXAMETHASONE [Suspect]
     Active Substance: DEXAMETHASONE
     Dosage: SECOND COURSE, TOTAL DOSE ADMINISTERED THIS COURSE: 12 MG
     Route: 065
     Dates: start: 20220121, end: 20220121
  9. INOTUZUMAB OZOGAMICIN [Suspect]
     Active Substance: INOTUZUMAB OZOGAMICIN
     Indication: Precursor B-lymphoblastic lymphoma
     Dosage: TOTAL DOSE ADMINISTERED THIS COURSE: 1.5 MG/M2, ON DAY 1, 8 AND 15 OF 28-DAY CYCLE)
     Route: 042
     Dates: start: 20211119, end: 20220105
  10. METHOTREXATE SODIUM [Suspect]
     Active Substance: METHOTREXATE SODIUM
     Indication: Precursor B-lymphoblastic lymphoma
     Dosage: ON DAYS 1, 8, 15 AND 22.
     Route: 037
  11. VINCRISTINE SULFATE [Suspect]
     Active Substance: VINCRISTINE SULFATE
     Indication: Precursor B-lymphoblastic lymphoma
     Dosage: (MAXIMUM 2 MG), ON DAYS 15, 22, 43, AND 50)
     Route: 042
  12. MERCAPTOPURINE [Suspect]
     Active Substance: MERCAPTOPURINE
     Indication: Precursor B-lymphoblastic lymphoma
     Dosage: ON DAYS 1-14 AND 29-42. ROUND TO THE NEAREST 25 MG DOSE.
     Route: 048
  13. PEG/L-ASPARAGINASE [Suspect]
     Active Substance: PEGASPARGASE
     Indication: Precursor B-lymphoblastic lymphoma
     Dosage: DOSE: 2000 IU/M2, ON DAYS 15 AND 43 (CAP DOSE AT 3750 IU)
     Route: 042

REACTIONS (5)
  - Epistaxis [Recovered/Resolved]
  - Platelet count decreased [Recovering/Resolving]
  - Pyrexia [Recovering/Resolving]
  - Haematuria [Recovering/Resolving]
  - Stomatitis [Recovering/Resolving]

NARRATIVE: CASE EVENT DATE: 20220207
